FAERS Safety Report 6540407-X (Version None)
Quarter: 2010Q1

REPORT INFORMATION
  Report Type: 
  Country: None (occurrence: None)
  Receive Date: 20100113
  Receipt Date: 20100104
  Transmission Date: 20100710
  Serious: Yes (Hospitalization, Disabling, Other)
  Sender: FDA-Public Use
  Company Number: 2010000039

PATIENT
  Age: 59 Year
  Sex: Male

DRUGS (3)
  1. ACTIQ [Suspect]
     Indication: PAIN
     Dosage: BU
     Route: 002
     Dates: start: 20070301, end: 20091101
  2. FENTANYL PATCH (PARACETAMOL, ORPHENADRINE CITRATE) (TRANSDERMAL PATCH) [Concomitant]
  3. NEXIUM [Concomitant]

REACTIONS (7)
  - BEDRIDDEN [None]
  - DEPRESSION [None]
  - DEVICE DISLOCATION [None]
  - JOINT SWELLING [None]
  - NEUROPATHY PERIPHERAL [None]
  - UPPER LIMB FRACTURE [None]
  - WALKING AID USER [None]
